FAERS Safety Report 8017983-3 (Version None)
Quarter: 2012Q1

REPORT INFORMATION
  Report Type: 
  Country: None (occurrence: None)
  Receive Date: 20120103
  Receipt Date: 20111226
  Transmission Date: 20120608
  Serious: Yes (Hospitalization, Other)
  Sender: FDA-Public Use
  Company Number: FR-B.I. PHARMACEUTICALS,INC./RIDGEFIELD-2011-FF-01226FF

PATIENT
  Sex: Male

DRUGS (7)
  1. CLARITIN [Concomitant]
  2. ARANESP [Concomitant]
  3. COLCHICINE [Concomitant]
  4. NEBIVOLOL HCL [Concomitant]
  5. FUROSEMIDE [Concomitant]
  6. ALLOPURINOL [Concomitant]
  7. PRADAXA [Suspect]
     Indication: ARRHYTHMIA
     Dosage: 220 MG
     Route: 048
     Dates: end: 20111124

REACTIONS (5)
  - INFECTION [None]
  - PROTHROMBIN TIME SHORTENED [None]
  - RENAL FAILURE ACUTE [None]
  - ACTIVATED PARTIAL THROMBOPLASTIN TIME PROLONGED [None]
  - PROTHROMBIN LEVEL DECREASED [None]
